FAERS Safety Report 7417200-9 (Version None)
Quarter: 2011Q2

REPORT INFORMATION
  Report Type: 
  Country: None (occurrence: None)
  Receive Date: 20110415
  Receipt Date: 20110216
  Transmission Date: 20111010
  Serious: Yes (Hospitalization, Other)
  Sender: FDA-Public Use
  Company Number: US-BAYER-201033874NA

PATIENT
  Age: 22 Year
  Sex: Female
  Weight: 55 kg

DRUGS (2)
  1. YASMIN [Suspect]
     Indication: MENSTRUAL DISORDER
     Dosage: UNK UNK, UNK
     Route: 048
     Dates: start: 20051101, end: 20080201
  2. YASMIN [Suspect]
     Indication: CONTRACEPTION

REACTIONS (1)
  - CEREBROVASCULAR ACCIDENT [None]
